FAERS Safety Report 5112728-9 (Version None)
Quarter: 2006Q3

REPORT INFORMATION
  Report Type: 
  Country: None (occurrence: None)
  Receive Date: 20060922
  Receipt Date: 20060919
  Transmission Date: 20061208
  Serious: Yes (Death)
  Sender: FDA-Public Use
  Company Number: 462711

PATIENT
  Age: 56 Year
  Sex: Male

DRUGS (7)
  1. CARVEDILOL [Suspect]
     Route: 048
     Dates: start: 20040825, end: 20060328
  2. ASPIRIN [Concomitant]
  3. MUCOSTA [Concomitant]
  4. METFORMIN HCL [Concomitant]
     Dates: start: 20040831
  5. RENIVACE [Concomitant]
     Dates: start: 20041130
  6. MICARDIS [Concomitant]
     Dates: start: 20050125
  7. LASIX [Concomitant]
     Dates: start: 20041221

REACTIONS (1)
  - DEATH [None]
